FAERS Safety Report 11445713 (Version 1)
Quarter: 2015Q3

REPORT INFORMATION
  Report Type: Spontaneous
  Country: FR (occurrence: FR)
  Receive Date: 20150902
  Receipt Date: 20150902
  Transmission Date: 20151125
  Serious: Yes (Death, Other)
  Sender: FDA-Public Use
  Company Number: FR-PFIZER INC-2015287745

PATIENT
  Age: 54 Year
  Sex: Male

DRUGS (10)
  1. AMLOR [Interacting]
     Active Substance: AMLODIPINE BESYLATE
     Dosage: 10 MG, DAILY
     Route: 048
  2. SOLIAN [Suspect]
     Active Substance: AMISULPRIDE
     Dosage: 400 MG, 2X/DAY
     Route: 048
  3. CLARITHROMYCIN. [Interacting]
     Active Substance: CLARITHROMYCIN
     Indication: BRONCHITIS
     Dosage: UNK
     Route: 048
     Dates: start: 201507
  4. THERALENE [Suspect]
     Active Substance: TRIMEPRAZINE
     Dosage: 40 GTT, DAILY
     Route: 048
  5. OGAST [Suspect]
     Active Substance: LANSOPRAZOLE
     Dosage: 30 MG, DAILY
     Route: 048
  6. LEPTICUR [Concomitant]
     Active Substance: TROPATEPINE HYDROCHLORIDE
     Dosage: 10 MG, DAILY
  7. GAVISCON /01405501/ [Concomitant]
     Active Substance: SODIUM ALGINATE\SODIUM BICARBONATE
  8. SPIRIVA [Concomitant]
     Active Substance: TIOTROPIUM BROMIDE MONOHYDRATE
     Dosage: 18 ?G, DAILY
     Route: 055
  9. LOXAPAC /00401801/ [Suspect]
     Active Substance: LOXAPINE SUCCINATE
     Dosage: 50 MG THRICE DAILY AND 100 MG AT BEDTIME
     Route: 048
  10. ESPERAL [Suspect]
     Active Substance: DISULFIRAM
     Indication: ALCOHOLISM
     Dosage: 500 MG, DAILY
     Route: 048

REACTIONS (6)
  - Drug interaction [Unknown]
  - Hyponatraemia [Unknown]
  - Hyperthermia [Unknown]
  - Hypotension [Unknown]
  - Cardiac arrest [Fatal]
  - Seizure [Recovered/Resolved]

NARRATIVE: CASE EVENT DATE: 201507
